FAERS Safety Report 9025395 (Version 1)
Quarter: 2013Q1

REPORT INFORMATION
  Report Type: Spontaneous
  Country: AU (occurrence: AU)
  Receive Date: 20130122
  Receipt Date: 20130122
  Transmission Date: 20140127
  Serious: Yes (Other)
  Sender: FDA-Public Use
  Company Number: AU-B.I. PHARMACEUTICALS,INC./RIDGEFIELD-2013-AU-00035AU

PATIENT
  Age: 75 Year
  Sex: Female

DRUGS (6)
  1. PRADAXA [Suspect]
     Indication: CEREBROVASCULAR ACCIDENT PROPHYLAXIS
     Dosage: 220 MG
     Dates: start: 20110831
  2. PRADAXA [Suspect]
     Indication: ATRIAL FIBRILLATION
  3. PREDNISONE [Concomitant]
     Indication: POLYMYALGIA RHEUMATICA
  4. ATACAND PLUS [Concomitant]
     Indication: HYPERTENSION
  5. LIPITOR [Concomitant]
     Indication: HYPERCHOLESTEROLAEMIA
  6. METOPROLOL [Concomitant]
     Indication: HYPERTENSION

REACTIONS (6)
  - Cerebral ischaemia [Recovered/Resolved]
  - Cerebral ischaemia [Recovered/Resolved]
  - Muscular weakness [Recovered/Resolved]
  - Hypoaesthesia [Recovered/Resolved]
  - Blood glucose increased [Unknown]
  - Therapy change [Unknown]
